FAERS Safety Report 25229738 (Version 1)
Quarter: 2025Q2

REPORT INFORMATION
  Report Type: Other
  Country: BE (occurrence: BE)
  Receive Date: 20250423
  Receipt Date: 20250423
  Transmission Date: 20250717
  Serious: Yes (Hospitalization, Other)
  Sender: ANI
  Company Number: BE-ANIPHARMA-022449

PATIENT
  Age: 45 Year
  Sex: Female

DRUGS (10)
  1. CYCLOPHOSPHAMIDE [Suspect]
     Active Substance: CYCLOPHOSPHAMIDE
     Indication: Triple negative breast cancer
     Dates: start: 2023
  2. CARBOPLATIN [Concomitant]
     Active Substance: CARBOPLATIN
     Indication: Triple negative breast cancer
     Dates: start: 202212, end: 2023
  3. PACLITAXEL [Concomitant]
     Active Substance: PACLITAXEL
     Indication: Triple negative breast cancer
     Dates: start: 202212, end: 2023
  4. INFLIXIMAB [Concomitant]
     Active Substance: INFLIXIMAB
     Indication: Immune-mediated enterocolitis
     Dates: start: 2023
  5. EPIRUBICIN [Concomitant]
     Active Substance: EPIRUBICIN
     Indication: Triple negative breast cancer
     Dates: start: 2023
  6. AMOXICILLIN\CLAVULANIC ACID [Concomitant]
     Active Substance: AMOXICILLIN\CLAVULANIC ACID
     Indication: Antibiotic therapy
     Dates: start: 202303
  7. COTRIMOXAZOLE [Concomitant]
     Active Substance: SULFAMETHOXAZOLE\TRIMETHOPRIM
     Indication: Prophylaxis
     Dates: start: 2023
  8. AMPHOTERICIN B [Concomitant]
     Active Substance: AMPHOTERICIN B
     Indication: Antifungal treatment
     Dates: start: 2023, end: 2023
  9. CARBOPLATIN [Concomitant]
     Active Substance: CARBOPLATIN
     Indication: Triple negative breast cancer
     Dates: start: 2023
  10. PACLITAXEL [Concomitant]
     Active Substance: PACLITAXEL
     Indication: Triple negative breast cancer
     Dates: start: 2023

REACTIONS (10)
  - Fungal endocarditis [Unknown]
  - Myocarditis [Unknown]
  - Loss of consciousness [Unknown]
  - Atrioventricular block complete [Unknown]
  - Bacterial infection [Unknown]
  - Paralysis [Unknown]
  - Cognitive disorder [Unknown]
  - Muscle atrophy [Unknown]
  - Hallucination [Unknown]
  - Confusional state [Unknown]

NARRATIVE: CASE EVENT DATE: 20230301
